FAERS Safety Report 7999142-3 (Version None)
Quarter: 2011Q4

REPORT INFORMATION
  Report Type: 
  Country: None (occurrence: None)
  Receive Date: 20111221
  Receipt Date: 20111220
  Transmission Date: 20120403
  Serious: Yes (Other)
  Sender: FDA-Public Use
  Company Number: FI-PFIZER INC-2011275334

PATIENT
  Age: 58 Year
  Sex: Female
  Weight: 58 kg

DRUGS (1)
  1. LYRICA [Suspect]
     Indication: BACK PAIN
     Dosage: 25 OR 50 MG, IN THE EVENING
     Dates: start: 20090101, end: 20110101

REACTIONS (10)
  - DIZZINESS [None]
  - ACCOMMODATION DISORDER [None]
  - FATIGUE [None]
  - FALL [None]
  - DISTURBANCE IN ATTENTION [None]
  - HYPOAESTHESIA [None]
  - FEELING DRUNK [None]
  - WOUND [None]
  - THOUGHT BLOCKING [None]
  - MEMORY IMPAIRMENT [None]
